FAERS Safety Report 4377622-X (Version None)
Quarter: 2004Q2

REPORT INFORMATION
  Report Type: 
  Country: None (occurrence: None)
  Receive Date: 20040615
  Receipt Date: 20040312
  Transmission Date: 20050107
  Serious: Yes (Death, Hospitalization)
  Sender: FDA-Public Use
  Company Number: 361190

PATIENT
  Age: 56 Year
  Sex: Female

DRUGS (10)
  1. CARVEDILOL [Suspect]
     Indication: HYPERTENSION
     Dosage: 12.5MG TWICE PER DAY
     Route: 048
     Dates: end: 20031124
  2. CO-DIOVAN [Suspect]
     Indication: HYPERTENSION
     Dosage: 1UNIT TWICE PER DAY
     Route: 048
     Dates: end: 20031124
  3. DIGITOXIN TAB [Suspect]
     Dosage: .07MG UNKNOWN
     Route: 048
     Dates: end: 20031124
  4. PHYSIOTENS [Suspect]
     Dosage: .3MG UNKNOWN
     Route: 048
     Dates: end: 20031124
  5. CARMEN [Concomitant]
     Route: 065
     Dates: end: 20031124
  6. EZETROL [Concomitant]
     Route: 065
     Dates: start: 20030615, end: 20031124
  7. FALITHROM [Concomitant]
     Route: 065
     Dates: end: 20031124
  8. PANTOZOL [Concomitant]
     Route: 065
     Dates: start: 20020615, end: 20031124
  9. SORTIS [Concomitant]
     Route: 065
     Dates: end: 20031124
  10. AQUAPHOR [Concomitant]
     Route: 065

REACTIONS (11)
  - ACIDOSIS [None]
  - BLOOD PRESSURE INCREASED [None]
  - BRADYCARDIA [None]
  - BUNDLE BRANCH BLOCK LEFT [None]
  - CARDIAC ARREST [None]
  - CARDIAC FAILURE ACUTE [None]
  - COLD SWEAT [None]
  - DYSPNOEA [None]
  - HYPERGLYCAEMIA [None]
  - HYPERKALAEMIA [None]
  - SINUS BRADYCARDIA [None]
